FAERS Safety Report 9116143 (Version 1)
Quarter: 2013Q1

REPORT INFORMATION
  Report Type: Spontaneous
  Country: US (occurrence: US)
  Receive Date: 20130225
  Receipt Date: 20130225
  Transmission Date: 20140127
  Serious: No
  Sender: FDA-Public Use
  Company Number: US-ENDO PHARMACEUTICALS INC.-FORT20120240

PATIENT
  Sex: Male
  Weight: 65.83 kg

DRUGS (1)
  1. FORTESTA [Suspect]
     Indication: BONE DENSITY DECREASED
     Route: 061
     Dates: start: 201210

REACTIONS (1)
  - Dysuria [Not Recovered/Not Resolved]
